FAERS Safety Report 8052424-1 (Version None)
Quarter: 2012Q1

REPORT INFORMATION
  Report Type: 
  Country: None (occurrence: None)
  Receive Date: 20120118
  Receipt Date: 20120112
  Transmission Date: 20120608
  Serious: Yes (Other)
  Sender: FDA-Public Use
  Company Number: US-PFIZER INC-2012010034

PATIENT
  Sex: Male
  Weight: 72.562 kg

DRUGS (4)
  1. DILANTIN [Suspect]
     Dosage: 200 MG, 1X/DAY
     Route: 048
  2. DILANTIN [Suspect]
     Indication: CONVULSION
     Dosage: 100 MG, 1X/DAY
     Route: 048
     Dates: start: 20080101
  3. DILANTIN [Suspect]
     Dosage: 200 MG, 3X/DAY
     Route: 048
  4. DILANTIN [Suspect]
     Dosage: UNK
     Route: 048

REACTIONS (5)
  - LOSS OF CONSCIOUSNESS [None]
  - DRUG EFFECT DECREASED [None]
  - CONVULSION [None]
  - IMPAIRED WORK ABILITY [None]
  - AMNESIA [None]
